FAERS Safety Report 19167589 (Version 1)
Quarter: 2021Q2

REPORT INFORMATION
  Report Type: Report from Study
  Country: IT (occurrence: IT)
  Receive Date: 20210422
  Receipt Date: 20210422
  Transmission Date: 20210717
  Serious: Yes (Life-Threatening, Other)
  Sender: FDA-Public Use
  Company Number: IT-ACCORD-223369

PATIENT

DRUGS (5)
  1. FLUOROURACIL. [Suspect]
     Active Substance: FLUOROURACIL
     Indication: OESOPHAGEAL CARCINOMA
     Dosage: ON DAYS 1?5, ADMINISTERED ON DAY 1, EVERY 21 DAYS FOR FOUR CYCLES
  2. GRANISETRON [Concomitant]
     Active Substance: GRANISETRON
     Indication: OESOPHAGEAL CARCINOMA
  3. MANNITOL. [Concomitant]
     Active Substance: MANNITOL
     Indication: OESOPHAGEAL CARCINOMA
  4. CISPLATIN. [Suspect]
     Active Substance: CISPLATIN
     Indication: OESOPHAGEAL CARCINOMA
     Dosage: ADMINISTERED ON DAY 1, EVERY 21 DAYS FOR FOUR CYCLES
  5. DEXAMETHASONE. [Concomitant]
     Active Substance: DEXAMETHASONE
     Indication: OESOPHAGEAL CARCINOMA

REACTIONS (1)
  - Febrile neutropenia [Unknown]
